FAERS Safety Report 13491313 (Version 1)
Quarter: 2017Q2

REPORT INFORMATION
  Report Type: Spontaneous
  Country: FR (occurrence: FR)
  Receive Date: 20170427
  Receipt Date: 20170427
  Transmission Date: 20170830
  Serious: Yes (Hospitalization)
  Sender: FDA-Public Use
  Company Number: FR-ASTRAZENECA-2017SE41614

PATIENT
  Age: 30728 Day
  Sex: Male

DRUGS (10)
  1. BRILIQUE [Suspect]
     Active Substance: TICAGRELOR
     Indication: MYOCARDIAL ISCHAEMIA
     Route: 048
     Dates: start: 201608, end: 20161212
  2. ADENURIC [Concomitant]
     Active Substance: FEBUXOSTAT
     Dates: end: 20161212
  3. KARDEGIC [Concomitant]
     Active Substance: ASPIRIN LYSINE
     Indication: MYOCARDIAL ISCHAEMIA
     Dosage: 75.0MG UNKNOWN
     Route: 048
     Dates: start: 201608
  4. KARDEGIC [Concomitant]
     Active Substance: ASPIRIN LYSINE
     Indication: MYOCARDIAL ISCHAEMIA
     Dosage: 75.0MG UNKNOWN
     Route: 048
  5. RADIOTHERAPY [Concomitant]
     Active Substance: RADIATION THERAPY
  6. INEXIUM [Concomitant]
     Active Substance: ESOMEPRAZOLE
  7. TAHOR [Concomitant]
     Active Substance: ATORVASTATIN CALCIUM
  8. VOLTARENE [Concomitant]
     Active Substance: DICLOFENAC SODIUM
     Dates: end: 20161212
  9. COLCHICINE. [Concomitant]
     Active Substance: COLCHICINE
     Dates: end: 20161212
  10. TRIATEC [Concomitant]
     Active Substance: RAMIPRIL

REACTIONS (3)
  - Rectal haemorrhage [Recovered/Resolved]
  - Diverticulitis intestinal haemorrhagic [Unknown]
  - Anaemia [Recovering/Resolving]

NARRATIVE: CASE EVENT DATE: 20161211
